FAERS Safety Report 8182751-9 (Version None)
Quarter: 2012Q1

REPORT INFORMATION
  Report Type: 
  Country: None (occurrence: None)
  Receive Date: 20120305
  Receipt Date: 20120223
  Transmission Date: 20120608
  Serious: Yes (Hospitalization, Other)
  Sender: FDA-Public Use
  Company Number: US-BAYER-201033661NA

PATIENT
  Age: 23 Year
  Sex: Female
  Weight: 90.703 kg

DRUGS (11)
  1. ZOLOFT [Concomitant]
     Route: 048
  2. DILANTIN [Concomitant]
     Indication: CONVULSION
     Dosage: UNK
     Dates: start: 20031201
  3. DROSPIRENONE AND ETHINYL ESTRADIOL [Suspect]
     Route: 048
     Dates: start: 20030901
  4. DECADRON [Concomitant]
     Indication: BRAIN OEDEMA
     Dosage: UNK
     Dates: start: 20031201
  5. PROVIGIL [Concomitant]
  6. MANNITOL [Concomitant]
     Indication: BRAIN OEDEMA
     Dosage: UNK
     Dates: start: 20031201
  7. YAZ [Suspect]
     Dosage: UNK
     Route: 048
     Dates: start: 20030901
  8. YASMIN [Suspect]
     Indication: MENSTRUAL DISORDER
     Dosage: UNK
     Route: 048
     Dates: start: 20030912, end: 20031223
  9. YASMIN [Suspect]
     Dosage: UNK
     Route: 048
     Dates: start: 20030912, end: 20031218
  10. ASCORBIC ACID [Concomitant]
  11. IBUPROFEN [Concomitant]

REACTIONS (4)
  - PAIN [None]
  - THALAMIC INFARCTION [None]
  - CEREBRAL INFARCTION [None]
  - BASAL GANGLIA STROKE [None]
